FAERS Safety Report 8533749-X (Version None)
Quarter: 2012Q3

REPORT INFORMATION
  Report Type: 
  Country: None (occurrence: None)
  Receive Date: 20120711
  Receipt Date: 20120627
  Transmission Date: 20120928
  Serious: Yes (Other)
  Sender: FDA-Public Use
  Company Number: USA/USA/12/0024628

PATIENT
  Sex: Female

DRUGS (5)
  1. MULTIVITAMIN (VIGRAN) [Concomitant]
  2. ASPIRIN [Concomitant]
  3. LISINOPRIL [Concomitant]
  4. SIMVASTATIN [Suspect]
     Indication: PRODUCT USED FOR UNKNOWN INDICATION
  5. METOOPROLOL (METOPOROLOL SUCCINATE) [Concomitant]

REACTIONS (3)
  - TREMOR [None]
  - ARTHROPATHY [None]
  - MUSCLE SPASMS [None]
